FAERS Safety Report 25007219 (Version 10)
Quarter: 2025Q4

REPORT INFORMATION
  Report Type: Spontaneous
  Country: US (occurrence: US)
  Receive Date: 20250225
  Receipt Date: 20251024
  Transmission Date: 20260118
  Serious: Yes (Death, Hospitalization, Other)
  Sender: RECORDATI
  Company Number: US-ORPHANEU-2025001174

PATIENT
  Age: 73 Year
  Sex: Female
  Weight: 44.898 kg

DRUGS (32)
  1. SIGNIFOR LAR [Suspect]
     Active Substance: PASIREOTIDE PAMOATE
     Indication: Acromegaly
     Dosage: 40 MG, (EVERY 4 WEEKS) AS DIRECTED
     Route: 030
     Dates: start: 20240927
  2. SIGNIFOR LAR [Suspect]
     Active Substance: PASIREOTIDE PAMOATE
     Indication: Gigantism
     Dosage: 40 MG, (EVERY 4 WEEKS) AS DIRECTED
     Route: 030
     Dates: end: 20250509
  3. SIGNIFOR LAR [Suspect]
     Active Substance: PASIREOTIDE PAMOATE
     Dosage: 40 MG, (EVERY 4 WEEKS) AS DIRECTED
     Route: 030
     Dates: start: 20250614, end: 2025
  4. SIGNIFOR LAR [Suspect]
     Active Substance: PASIREOTIDE PAMOATE
     Dosage: 40 MG, (EVERY 4 WEEKS) AS DIRECTED
     Route: 030
     Dates: start: 20250812, end: 2025
  5. SIGNIFOR LAR [Suspect]
     Active Substance: PASIREOTIDE PAMOATE
     Dosage: 40 MG, EVERY 28 DAYS OR EVERY 4 WEEKS
     Route: 030
     Dates: start: 2025
  6. OMEPRAZOLE [Concomitant]
     Active Substance: OMEPRAZOLE
     Indication: Product used for unknown indication
     Dosage: UNK
  7. NORVASC [Concomitant]
     Active Substance: AMLODIPINE BESYLATE
     Indication: Product used for unknown indication
     Dosage: NORVASC 5MG (UNKNOWN DOSE AND FREQUENCY)
  8. INSULIN LISPRO [Concomitant]
     Active Substance: INSULIN LISPRO
     Indication: Product used for unknown indication
     Dosage: UNK (100U ML)
  9. PRANDIN [Concomitant]
     Active Substance: REPAGLINIDE
     Indication: Product used for unknown indication
     Dosage: UNK
  10. RYBELSUS [Concomitant]
     Active Substance: SEMAGLUTIDE
     Indication: Product used for unknown indication
     Dosage: UNK
  11. SYNJARDY XR [Concomitant]
     Active Substance: EMPAGLIFLOZIN\METFORMIN HYDROCHLORIDE
     Indication: Product used for unknown indication
     Dosage: UNK
  12. FISH OIL [Concomitant]
     Active Substance: FISH OIL
     Indication: Product used for unknown indication
     Dosage: 1000 MG, QD, CAPSULE
     Route: 048
     Dates: start: 20170617
  13. SOMAVERT [Concomitant]
     Active Substance: PEGVISOMANT
     Indication: Product used for unknown indication
     Dosage: 10 MG, DAILY, SOLUTION
     Route: 058
     Dates: start: 20181101
  14. HYDROCORTISONE [Concomitant]
     Active Substance: HYDROCORTISONE
     Indication: Product used for unknown indication
     Dosage: 2 TABLETS IN THE MORNING AND HALF TABLET IN THE EVENING, BID
     Route: 048
  15. HYDROCORTISONE [Concomitant]
     Active Substance: HYDROCORTISONE
     Dosage: 10 MG, BID, TABLET
     Route: 048
     Dates: start: 20181101
  16. LOSARTAN POTASSIUM [Concomitant]
     Active Substance: LOSARTAN POTASSIUM
     Indication: Product used for unknown indication
     Dosage: 100 MG, QD, TABLET
     Route: 048
     Dates: start: 20190617
  17. COREG [Concomitant]
     Active Substance: CARVEDILOL
     Indication: Product used for unknown indication
     Dosage: 12.5 MG, BID, TABLET
     Route: 048
     Dates: start: 20190617
  18. CALCIUM [Concomitant]
     Active Substance: CALCIUM
     Indication: Product used for unknown indication
     Dosage: 500 MG, BID, TABLET
     Route: 048
     Dates: start: 20191027
  19. VITAMIN D3 [Concomitant]
     Active Substance: CHOLECALCIFEROL
     Indication: Product used for unknown indication
     Dosage: 25 MICROGRAM, QD, CAPSULE
     Route: 048
     Dates: start: 20191027
  20. GABAPENTIN [Concomitant]
     Active Substance: GABAPENTIN
     Indication: Product used for unknown indication
     Dosage: 300 MG, QD (HS), CAPSULE
     Route: 048
     Dates: start: 20201027
  21. AMLODIPINE BESYLATE [Concomitant]
     Active Substance: AMLODIPINE BESYLATE
     Indication: Product used for unknown indication
     Dosage: 10 MG, QD, TABLET
     Route: 048
     Dates: start: 20201027
  22. AMLODIPINE BESYLATE [Concomitant]
     Active Substance: AMLODIPINE BESYLATE
     Dosage: UNK
  23. AMLODIPINE BESYLATE [Concomitant]
     Active Substance: AMLODIPINE BESYLATE
     Dosage: 15 MG
  24. AMLODIPINE BESYLATE [Concomitant]
     Active Substance: AMLODIPINE BESYLATE
     Dosage: 10 MG
  25. AMLODIPINE BESYLATE [Concomitant]
     Active Substance: AMLODIPINE BESYLATE
     Dosage: 5 MG
     Dates: start: 2025
  26. IBUPROFEN [Concomitant]
     Active Substance: IBUPROFEN
     Indication: Product used for unknown indication
     Dosage: 400 MG, PRN, TABLET
     Route: 048
     Dates: start: 20210802
  27. SEMGLEE (INSULIN GLARGINE-YFGN) [Concomitant]
     Active Substance: INSULIN GLARGINE-YFGN
     Indication: Product used for unknown indication
     Dosage: 100 UNIT/ML, QD, SOLUTION (HS)
     Route: 058
     Dates: start: 20211213
  28. METFORMIN HYDROCHLORIDE [Concomitant]
     Active Substance: METFORMIN HYDROCHLORIDE
     Indication: Product used for unknown indication
     Dosage: 500 MG, BID, TABLET
     Route: 048
     Dates: start: 20211213
  29. ALOGLIPTIN BENZOATE [Concomitant]
     Active Substance: ALOGLIPTIN BENZOATE
     Indication: Product used for unknown indication
     Dosage: 25 MG, QD, TABLET
     Route: 048
     Dates: start: 20211213
  30. MUPIROCIN [Concomitant]
     Active Substance: MUPIROCIN
     Indication: Product used for unknown indication
     Dosage: 2 PERCENT, QD, OINTMENT
     Route: 061
     Dates: start: 20240915
  31. VALTREX [Concomitant]
     Active Substance: VALACYCLOVIR HYDROCHLORIDE
     Indication: Product used for unknown indication
     Dosage: 1 GRAM, TID, TABLET
     Route: 048
     Dates: start: 20240915
  32. VALTREX [Concomitant]
     Active Substance: VALACYCLOVIR HYDROCHLORIDE
     Indication: Product used for unknown indication

REACTIONS (22)
  - Cerebrovascular accident [Fatal]
  - Cerebrovascular accident [Unknown]
  - Myocardial infarction [Unknown]
  - Peripheral swelling [Recovered/Resolved]
  - Fall [Unknown]
  - Nasal septum disorder [Unknown]
  - Swelling of nose [Unknown]
  - Nasal pruritus [Unknown]
  - Periorbital oedema [Unknown]
  - Peripheral swelling [Unknown]
  - Urinary retention [Recovered/Resolved]
  - Urinary tract infection [Not Recovered/Not Resolved]
  - Pollakiuria [Not Recovered/Not Resolved]
  - Bowel movement irregularity [Not Recovered/Not Resolved]
  - Dementia [Not Recovered/Not Resolved]
  - Oedema [Unknown]
  - Musculoskeletal chest pain [Recovered/Resolved]
  - Epistaxis [Unknown]
  - Oedema peripheral [Not Recovered/Not Resolved]
  - Influenza [Unknown]
  - Fatigue [Not Recovered/Not Resolved]
  - Product dose omission issue [Recovered/Resolved]

NARRATIVE: CASE EVENT DATE: 20241201
